FAERS Safety Report 9010920 (Version 1)
Quarter: 2013Q1

REPORT INFORMATION
  Report Type: Spontaneous
  Country: GB (occurrence: GB)
  Receive Date: 20130109
  Receipt Date: 20130109
  Transmission Date: 20140127
  Serious: Yes (Hospitalization, Other)
  Sender: FDA-Public Use
  Company Number: GB-B.I. PHARMACEUTICALS,INC./RIDGEFIELD-2013-UK-00021UK

PATIENT
  Age: 80 Year
  Sex: Male

DRUGS (5)
  1. PRADAXA [Suspect]
     Indication: ATRIAL FIBRILLATION
     Dosage: 110MG 2/1 DAYS
     Route: 048
     Dates: start: 20120905, end: 20121213
  2. ADIZEM-XL [Concomitant]
     Dosage: 180MG 1/1 DAYS
     Route: 048
  3. FLECAINIDE [Concomitant]
     Indication: ATRIAL FIBRILLATION
     Dosage: 100MG 2/1 DAYS
     Route: 048
     Dates: end: 20121213
  4. LORATADINE [Concomitant]
     Dosage: 10MG 1/1 DAYS
     Route: 048
  5. SOLIFENACIN [Concomitant]
     Dosage: 5MG 1/1 DAYS
     Route: 048

REACTIONS (3)
  - Chest pain [Recovered/Resolved]
  - Acute myocardial infarction [Recovered/Resolved]
  - Troponin increased [Recovered/Resolved]
